FAERS Safety Report 10351560 (Version 1)
Quarter: 2014Q3

REPORT INFORMATION
  Report Type: Other
  Country: DK (occurrence: BE)
  Receive Date: 20140730
  Receipt Date: 20140730
  Transmission Date: 20150326
  Serious: Yes (Hospitalization)
  Sender: FDA-Public Use
  Company Number: BE-FRI-1000069454

PATIENT
  Age: 58 Year
  Sex: Male

DRUGS (1)
  1. CITALOPRAM [Suspect]
     Active Substance: CITALOPRAM HYDROBROMIDE

REACTIONS (5)
  - Inappropriate antidiuretic hormone secretion [Unknown]
  - Diarrhoea [Unknown]
  - Malaise [Unknown]
  - Somnolence [Unknown]
  - Nausea [Unknown]
